FAERS Safety Report 5304733-4 (Version None)
Quarter: 2007Q1

REPORT INFORMATION
  Report Type: 
  Country: None (occurrence: None)
  Receive Date: 20070201
  Receipt Date: 20061117
  Transmission Date: 20070707
  Serious: No
  Sender: FDA-Public Use
  Company Number: 2006PV025478

PATIENT
  Age: 55 Year
  Sex: Female
  Weight: 122.9248 kg

DRUGS (4)
  1. BYETTA [Suspect]
     Indication: DIABETES MELLITUS NON-INSULIN-DEPENDENT
     Dosage: 5 MCG; BID; SC
     Route: 058
     Dates: start: 20061109
  2. GLUCOPHAGE [Concomitant]
  3. VASOTEC [Concomitant]
  4. CRESTOR [Concomitant]

REACTIONS (3)
  - NASOPHARYNGITIS [None]
  - SINUS CONGESTION [None]
  - WEIGHT DECREASED [None]
